FAERS Safety Report 20474752 (Version 2)
Quarter: 2022Q1

REPORT INFORMATION
  Report Type: Spontaneous
  Country: ES (occurrence: ES)
  Receive Date: 20220215
  Receipt Date: 20220222
  Transmission Date: 20220423
  Serious: Yes (Hospitalization, Other)
  Sender: FDA-Public Use
  Company Number: ES-ORG100014127-2022000180

PATIENT
  Age: 7 Year
  Sex: Female

DRUGS (9)
  1. MITOTANE [Suspect]
     Active Substance: MITOTANE
     Dosage: 4.3G/M2
     Route: 048
     Dates: start: 202106, end: 20220123
  2. MITOTANE [Suspect]
     Active Substance: MITOTANE
     Dosage: 4G/M2
     Route: 048
     Dates: start: 20220124, end: 20220222
  3. ENOXAPARIN [Concomitant]
     Active Substance: ENOXAPARIN
     Dosage: 30 MG / 24 H
  4. CAPTOPRIL [Concomitant]
     Active Substance: CAPTOPRIL
     Dosage: 12.5 MG / 12 H
  5. LEVETIRACETAM [Concomitant]
     Active Substance: LEVETIRACETAM
     Dosage: 250 MG / 12 H
  6. COTRIMOXAZOLE [Concomitant]
     Active Substance: SULFAMETHOXAZOLE\TRIMETHOPRIM
     Dosage: 56 MG / 12 H
  7. Hidrocostisone [Concomitant]
     Dosage: 10 MG / 8 H
  8. OMEPRAZOLE [Concomitant]
     Active Substance: OMEPRAZOLE
     Dosage: 20 MG / 24 H
  9. PEMBROLIZUMAB [Concomitant]
     Active Substance: PEMBROLIZUMAB
     Dosage: 2 MG/KG / 3 WEEKS

REACTIONS (3)
  - Dysmetria [Recovering/Resolving]
  - Adrenocortical insufficiency acute [Recovering/Resolving]
  - Ataxia [Recovering/Resolving]

NARRATIVE: CASE EVENT DATE: 20220202
